FAERS Safety Report 9670852 (Version 1)
Quarter: 2013Q4

REPORT INFORMATION
  Report Type: Report from Study
  Country: KR (occurrence: KR)
  Receive Date: 20131106
  Receipt Date: 20131106
  Transmission Date: 20140711
  Serious: No
  Sender: FDA-Public Use
  Company Number: PHHY2013KR124398

PATIENT
  Age: 69 Year
  Sex: Female

DRUGS (17)
  1. AMN107 [Suspect]
     Indication: CHRONIC MYELOID LEUKAEMIA
     Dosage: 600 MG, UNK
     Route: 048
     Dates: start: 20121220, end: 20130106
  2. AMN107 [Suspect]
     Dosage: 400 MG, UNK
     Route: 048
     Dates: start: 20130124, end: 20130124
  3. TYLENOL [Concomitant]
     Indication: UPPER RESPIRATORY TRACT INFECTION
     Dosage: 3900 MG, UNK
     Route: 048
     Dates: start: 20130107, end: 20130114
  4. ASPIRIN PROTECT [Concomitant]
     Indication: ATRIAL FIBRILLATION
     Dosage: 100 MG, UNK
     Route: 048
     Dates: start: 20121213
  5. NISOLONE [Concomitant]
     Indication: URTICARIA
     Dosage: 5 MG, UNK
     Route: 048
     Dates: start: 20130107, end: 20130114
  6. NISOLONE [Concomitant]
     Dosage: 10 MG, UNK
     Dates: start: 20130110, end: 20130117
  7. GODEX [Concomitant]
     Indication: ASPARTATE AMINOTRANSFERASE INCREASED
     Dosage: 4 DF, UNK
     Route: 048
     Dates: start: 20130117, end: 20130124
  8. GODEX [Concomitant]
     Indication: ALANINE AMINOTRANSFERASE INCREASED
  9. MUCOPECT [Concomitant]
     Indication: UPPER RESPIRATORY TRACT INFECTION
     Dosage: 90 MG, UNK
     Route: 048
     Dates: start: 20130107, end: 20130114
  10. HELPOVIN [Concomitant]
     Indication: ASPARTATE AMINOTRANSFERASE INCREASED
     Dosage: 20 G, UNK
     Route: 042
     Dates: start: 20130108, end: 20130111
  11. HELPOVIN [Concomitant]
     Indication: ALANINE AMINOTRANSFERASE INCREASED
  12. GASMOTIN [Concomitant]
     Indication: DYSPEPSIA
     Dosage: 15 MG, UNK
     Route: 048
     Dates: start: 20121211
  13. TRITACE [Concomitant]
     Indication: ATRIAL FIBRILLATION
     Dosage: 2.5 MG, UNK
     Route: 048
     Dates: start: 20121220
  14. CODAEWON [Concomitant]
     Indication: UPPER RESPIRATORY TRACT INFECTION
     Dosage: 3 DF, UNK
     Route: 048
     Dates: start: 20130107, end: 20130114
  15. CEFTAZIDIME [Concomitant]
     Indication: PHARYNGITIS
     Dosage: 6 G, UNK
     Route: 042
     Dates: start: 20130108, end: 20130110
  16. UCERAX [Concomitant]
     Indication: URTICARIA
     Dosage: 3 DF, UNK
     Route: 048
     Dates: start: 20130108, end: 20130118
  17. ZYLORIC [Concomitant]
     Indication: GOUT
     Dosage: 300 MG, UNK
     Route: 048
     Dates: start: 20121211

REACTIONS (1)
  - Anaemia [Recovered/Resolved]
